FAERS Safety Report 8060733-5 (Version None)
Quarter: 2012Q1

REPORT INFORMATION
  Report Type: 
  Country: None (occurrence: None)
  Receive Date: 20120120
  Receipt Date: 20120106
  Transmission Date: 20120608
  Serious: Yes (Other)
  Sender: FDA-Public Use
  Company Number: FR-WATSON-2012-00231

PATIENT
  Sex: Male

DRUGS (2)
  1. VALPROATE SODIUM [Suspect]
     Indication: EPILEPSY
     Dosage: 3 DF, DAILY
     Route: 048
     Dates: start: 20111219, end: 20120102
  2. VALPROATE SODIUM [Suspect]
     Dosage: 4 DF, DAILY
     Route: 048
     Dates: start: 20120102, end: 20120106

REACTIONS (1)
  - CONVULSION [None]
